FAERS Safety Report 6670371-4 (Version None)
Quarter: 2010Q2

REPORT INFORMATION
  Report Type: 
  Country: None (occurrence: None)
  Receive Date: 20100407
  Receipt Date: 20100330
  Transmission Date: 20101027
  Serious: Yes (Hospitalization)
  Sender: FDA-Public Use
  Company Number: US-BIOGENIDEC-2010BI007783

PATIENT
  Age: 65 Year
  Sex: Female

DRUGS (1)
  1. TYSABRI [Suspect]
     Indication: MULTIPLE SCLEROSIS
     Route: 042
     Dates: start: 20081112, end: 20090923

REACTIONS (5)
  - ASTHENIA [None]
  - ATROPHY [None]
  - DEHYDRATION [None]
  - MALNUTRITION [None]
  - URINARY TRACT INFECTION [None]
